FAERS Safety Report 15328362 (Version 1)
Quarter: 2018Q3

REPORT INFORMATION
  Report Type: Spontaneous
  Country: ES (occurrence: ES)
  Receive Date: 20180829
  Receipt Date: 20180829
  Transmission Date: 20181010
  Serious: Yes (Hospitalization, Other)
  Sender: FDA-Public Use
  Company Number: ES-TEVA-2018-ES-949157

PATIENT
  Age: 17 Year
  Sex: Female

DRUGS (2)
  1. PARACETAMOL (12A) [Interacting]
     Active Substance: ACETAMINOPHEN
     Indication: SUICIDE ATTEMPT
     Route: 048
     Dates: start: 20180721, end: 20180721
  2. AMOXICILINA (108A) [Suspect]
     Active Substance: AMOXICILLIN
     Indication: SUICIDE ATTEMPT
     Route: 048
     Dates: start: 20180721, end: 20180721

REACTIONS (3)
  - Vomiting [Recovered/Resolved]
  - Overdose [Recovered/Resolved]
  - Drug interaction [Recovered/Resolved]

NARRATIVE: CASE EVENT DATE: 20180721
